FAERS Safety Report 5633737-7 (Version None)
Quarter: 2008Q1

REPORT INFORMATION
  Report Type: 
  Country: None (occurrence: None)
  Receive Date: 20080219
  Receipt Date: 20080131
  Transmission Date: 20080703
  Serious: Yes (Other)
  Sender: FDA-Public Use
  Company Number: VNL_00944_2008

PATIENT
  Sex: Female

DRUGS (5)
  1. APO-GO (APO-GO PFS 5 MG/ML SOLUTION FOR INFUSION IN PRE-FILLED SYRINGE [Suspect]
     Indication: PARKINSON'S DISEASE
     Dosage: 70 MG FOR 19 WEEKS 4 DAYS PLUS 2 MG BOLUS SUBCUTANEOUS)
     Route: 058
     Dates: start: 20070820, end: 20080103
  2. CITALOPRAM HYDROBROMIDE [Concomitant]
  3. LEVOTHYROXINE SODIUM [Concomitant]
  4. HYDROXOCOBALAMIN [Concomitant]
  5. CO-CARELDOPA [Concomitant]

REACTIONS (4)
  - INFUSION RELATED REACTION [None]
  - INFUSION SITE ABSCESS [None]
  - INFUSION SITE INFECTION [None]
  - INFUSION SITE MASS [None]
